FAERS Safety Report 9360365 (Version 4)
Quarter: 2014Q2

REPORT INFORMATION
  Report Type: Spontaneous
  Country: US (occurrence: US)
  Receive Date: 20130621
  Receipt Date: 20140527
  Transmission Date: 20141212
  Serious: No
  Sender: FDA-Public Use
  Company Number: US-BIOGENIDEC-2013BI055380

PATIENT
  Age: 55 Year
  Sex: Female

DRUGS (3)
  1. AVONEX [Suspect]
     Indication: MULTIPLE SCLEROSIS
     Route: 030
     Dates: start: 20081203, end: 20090801
  2. AVONEX [Suspect]
     Indication: MULTIPLE SCLEROSIS
     Route: 030
     Dates: start: 20110101, end: 20120530
  3. AVONEX [Suspect]
     Indication: MULTIPLE SCLEROSIS
     Route: 030
     Dates: start: 20120606

REACTIONS (12)
  - Back pain [Not Recovered/Not Resolved]
  - Hypertension [Recovered/Resolved]
  - Back disorder [Unknown]
  - Anger [Unknown]
  - Stress [Unknown]
  - Fibromyalgia [Unknown]
  - Gait disturbance [Unknown]
  - Urinary tract infection [Not Recovered/Not Resolved]
  - Insomnia [Unknown]
  - Emotional distress [Recovered/Resolved]
  - Fatigue [Unknown]
  - Pain [Not Recovered/Not Resolved]
